FAERS Safety Report 19270809 (Version 1)
Quarter: 2021Q2

REPORT INFORMATION
  Report Type: Spontaneous
  Country: US (occurrence: US)
  Receive Date: 20210518
  Receipt Date: 20210518
  Transmission Date: 20210717
  Serious: No
  Sender: FDA-Public Use
  Company Number: US-BAYER-2021-142746

PATIENT

DRUGS (2)
  1. XYZAL [Concomitant]
     Active Substance: LEVOCETIRIZINE DIHYDROCHLORIDE
  2. CLARITIN [Suspect]
     Active Substance: LORATADINE

REACTIONS (1)
  - Somnolence [Unknown]
